FAERS Safety Report 8119974-0 (Version None)
Quarter: 2012Q1

REPORT INFORMATION
  Report Type: 
  Country: None (occurrence: None)
  Receive Date: 20120206
  Receipt Date: 20120206
  Transmission Date: 20120608
  Serious: No
  Sender: FDA-Public Use
  Company Number: None

PATIENT
  Age: 58 Year
  Sex: Female
  Weight: 72.5755 kg

DRUGS (1)
  1. KENALOG-10 [Suspect]
     Indication: MACULAR OEDEMA
     Dosage: 1  1  INJ
     Dates: start: 20111201

REACTIONS (2)
  - EYE DISORDER [None]
  - MUSCLE DISORDER [None]
